FAERS Safety Report 23570209 (Version 1)
Quarter: 2024Q1

REPORT INFORMATION
  Report Type: Spontaneous
  Country: US (occurrence: None)
  Receive Date: 20240226
  Receipt Date: 20240226
  Transmission Date: 20240409
  Serious: Yes (Hospitalization)
  Sender: FDA-Public Use
  Company Number: None

PATIENT
  Age: 52 Year
  Sex: Female
  Weight: 67.1 kg

DRUGS (2)
  1. OPDUALAG [Suspect]
     Active Substance: NIVOLUMAB\RELATLIMAB-RMBW
     Indication: Malignant melanoma
     Dosage: ?Q4W  INTRAVENOUS
     Route: 042
     Dates: start: 20231213
  2. IPILIMUMAB [Suspect]
     Active Substance: IPILIMUMAB
     Indication: Malignant melanoma
     Dosage: 62 MG Q8W INTRAVENOUS?
     Route: 042
     Dates: start: 20231213

REACTIONS (2)
  - Colitis [None]
  - Diarrhoea [None]
